FAERS Safety Report 12336190 (Version 5)
Quarter: 2017Q1

REPORT INFORMATION
  Report Type: Spontaneous
  Country: US (occurrence: US)
  Receive Date: 20160505
  Receipt Date: 20170109
  Transmission Date: 20170428
  Serious: No
  Sender: FDA-Public Use
  Company Number: US-PFIZER INC-2016243439

PATIENT
  Age: 69 Year
  Sex: Female
  Weight: 64 kg

DRUGS (8)
  1. ESTRING [Suspect]
     Active Substance: ESTRADIOL
     Indication: VULVOVAGINAL DRYNESS
     Dosage: UNK
  2. ESTRING [Suspect]
     Active Substance: ESTRADIOL
     Dosage: UNK
  3. LOPRESSOR [Concomitant]
     Active Substance: METOPROLOL TARTRATE
     Dosage: UNK
  4. ESTRING [Suspect]
     Active Substance: ESTRADIOL
     Indication: OESTROGEN REPLACEMENT THERAPY
     Dosage: UNK
     Dates: start: 201603
  5. ESTRING [Suspect]
     Active Substance: ESTRADIOL
     Indication: MENOPAUSAL SYMPTOMS
     Dosage: UNK
     Dates: start: 20160420, end: 20160424
  6. NITROSTAT [Concomitant]
     Active Substance: NITROGLYCERIN
     Dosage: UNK
  7. ESTRING [Suspect]
     Active Substance: ESTRADIOL
     Indication: DYSPAREUNIA
     Dosage: UNK, EVERY 3 MONTHS(PLACE ONE RING EVERY 3 MONTH)
     Route: 067
     Dates: start: 20160404
  8. LEVOTHYROXINE. [Concomitant]
     Active Substance: LEVOTHYROXINE
     Dosage: UNK

REACTIONS (5)
  - Back pain [Recovered/Resolved]
  - Drug ineffective [Unknown]
  - Abdominal pain upper [Recovered/Resolved]
  - Pain [Unknown]
  - Product quality issue [Unknown]

NARRATIVE: CASE EVENT DATE: 20160404
